FAERS Safety Report 6297326-6 (Version None)
Quarter: 2009Q3

REPORT INFORMATION
  Report Type: 
  Country: None (occurrence: None)
  Receive Date: 20090805
  Receipt Date: 20090723
  Transmission Date: 20100115
  Serious: Yes (Hospitalization)
  Sender: FDA-Public Use
  Company Number: US-PFIZER INC-2008041702

PATIENT
  Sex: Female
  Weight: 90.72 kg

DRUGS (12)
  1. CHANTIX [Suspect]
     Dates: start: 20080401, end: 20080501
  2. CHANTIX [Suspect]
     Dosage: 1 MG, 2X/DAY
     Dates: start: 20090718
  3. NEXIUM [Concomitant]
  4. CARVEDILOL [Concomitant]
  5. ALTACE [Concomitant]
  6. PAXIL [Concomitant]
  7. TRAZODONE HCL [Concomitant]
  8. KLONOPIN [Concomitant]
  9. FLEXERIL [Concomitant]
  10. PERCOCET [Concomitant]
     Dosage: NA EVERY 6 HOURS
  11. NEURONTIN [Concomitant]
  12. LIBRAX [Concomitant]

REACTIONS (12)
  - ABNORMAL BEHAVIOUR [None]
  - ASTHENIA [None]
  - CYSTITIS [None]
  - DRUG INEFFECTIVE [None]
  - INSOMNIA [None]
  - MEMORY IMPAIRMENT [None]
  - MIGRAINE [None]
  - NIGHTMARE [None]
  - PNEUMONIA [None]
  - SINUSITIS [None]
  - STRESS [None]
  - WEIGHT DECREASED [None]
